FAERS Safety Report 7205536-6 (Version None)
Quarter: 2010Q4

REPORT INFORMATION
  Report Type: 
  Country: None (occurrence: None)
  Receive Date: 20101231
  Receipt Date: 20101221
  Transmission Date: 20110411
  Serious: Yes (Hospitalization)
  Sender: FDA-Public Use
  Company Number: PHHY2010US87361

PATIENT
  Sex: Female

DRUGS (1)
  1. ERL 080A [Suspect]
     Dosage: 720 MG, BID
     Route: 048
     Dates: start: 20101011

REACTIONS (6)
  - BACK PAIN [None]
  - ESCHERICHIA BACTERAEMIA [None]
  - NAUSEA [None]
  - PYELONEPHRITIS [None]
  - RENAL FAILURE ACUTE [None]
  - VOMITING [None]
